FAERS Safety Report 26011580 (Version 2)
Quarter: 2025Q4

REPORT INFORMATION
  Report Type: Report from Study
  Country: CO (occurrence: None)
  Receive Date: 20251107
  Receipt Date: 20251218
  Transmission Date: 20260118
  Serious: No
  Sender: UCB
  Company Number: CO-UCBSA-2025070079

PATIENT
  Age: 44 Year

DRUGS (1)
  1. CIMZIA [Suspect]
     Active Substance: CERTOLIZUMAB PEGOL
     Indication: Ankylosing spondylitis
     Dosage: 400 MILLIGRAM, EV 30 DAYS

REACTIONS (1)
  - Off label use [Unknown]
